FAERS Safety Report 5303915-5 (Version None)
Quarter: 2007Q1

REPORT INFORMATION
  Report Type: 
  Country: None (occurrence: None)
  Receive Date: 20070201
  Receipt Date: 20061120
  Transmission Date: 20070707
  Serious: No
  Sender: FDA-Public Use
  Company Number: 2006PV025576

PATIENT
  Age: 58 Year
  Sex: Female
  Weight: 117.9352 kg

DRUGS (7)
  1. BYETTA [Suspect]
     Indication: DIABETES MELLITUS NON-INSULIN-DEPENDENT
     Dosage: SEE IMAGE
     Route: 058
     Dates: start: 20061001, end: 20061101
  2. BYETTA [Suspect]
     Indication: DIABETES MELLITUS NON-INSULIN-DEPENDENT
     Dosage: SEE IMAGE
     Route: 058
     Dates: start: 20061101, end: 20061119
  3. METFORMIN HCL [Concomitant]
  4. GLUCOPHAGE [Concomitant]
  5. ACTOS [Concomitant]
  6. NEURONTIN [Concomitant]
  7. NASONEX [Concomitant]

REACTIONS (12)
  - ABDOMINAL PAIN UPPER [None]
  - BONE PAIN [None]
  - FEELING ABNORMAL [None]
  - FEELING HOT [None]
  - FEELING OF DESPAIR [None]
  - IRRITABILITY [None]
  - LOGORRHOEA [None]
  - MULTIPLE ALLERGIES [None]
  - NASOPHARYNGITIS [None]
  - NAUSEA [None]
  - PAIN [None]
  - SOMNOLENCE [None]
